FAERS Safety Report 10237741 (Version 1)
Quarter: 2014Q2

REPORT INFORMATION
  Report Type: Report from Study
  Country: GB (occurrence: GB)
  Receive Date: 20140616
  Receipt Date: 20140616
  Transmission Date: 20141212
  Serious: Yes (Hospitalization)
  Sender: FDA-Public Use
  Company Number: GB-009507513-1406GBR004721

PATIENT
  Sex: Female
  Weight: 74.4 kg

DRUGS (11)
  1. VORINOSTAT [Suspect]
     Indication: ACUTE MYELOID LEUKAEMIA
     Dosage: 300 MG, BID (CURRENT CYCLE 1)
     Route: 048
     Dates: start: 20140515, end: 20140520
  2. VORINOSTAT [Suspect]
     Indication: MYELODYSPLASTIC SYNDROME
  3. 5-AZACYTIDINE [Suspect]
     Indication: MYELODYSPLASTIC SYNDROME
     Dosage: 140 MG, QD
     Route: 058
     Dates: start: 20140512, end: 20140520
  4. 5-AZACYTIDINE [Suspect]
     Indication: ACUTE MYELOID LEUKAEMIA
  5. BISOPROLOL [Concomitant]
     Indication: HYPERTENSION
     Dosage: 2.5 MG, BID
     Dates: end: 20140527
  6. ACETAMINOPHEN [Concomitant]
     Indication: PAIN
     Dosage: 1 G, QD
     Dates: end: 20140527
  7. ACETAMINOPHEN [Concomitant]
     Indication: PYREXIA
  8. LINEZOLID [Concomitant]
     Indication: SOFT TISSUE INFECTION
     Dosage: 600 MG, BID
     Dates: end: 20140527
  9. OMEPRAZOLE [Concomitant]
     Dosage: 20 MG, BID
     Dates: end: 20140527
  10. POSACONAZOLE [Concomitant]
     Indication: FUNGAL INFECTION
     Dosage: 400 MG, BID
     Dates: start: 20140521, end: 20140527
  11. ACYCLOVIR [Concomitant]
     Indication: VIRAL INFECTION
     Dosage: 400 MG, TID
     Dates: start: 20131011, end: 20140527

REACTIONS (3)
  - Vulval ulceration [Not Recovered/Not Resolved]
  - Febrile neutropenia [Not Recovered/Not Resolved]
  - Nausea [Not Recovered/Not Resolved]
